FAERS Safety Report 8312889-4 (Version None)
Quarter: 2012Q2

REPORT INFORMATION
  Report Type: 
  Country: None (occurrence: None)
  Receive Date: 20120426
  Receipt Date: 20120418
  Transmission Date: 20120825
  Serious: Yes (Hospitalization)
  Sender: FDA-Public Use
  Company Number: US-BAYER-200936862NA

PATIENT
  Age: 37 Year
  Sex: Female
  Weight: 70.909 kg

DRUGS (4)
  1. WARFARIN SODIUM [Concomitant]
     Dosage: UNK
     Dates: start: 20080415, end: 20080822
  2. YAZ [Suspect]
     Route: 048
  3. WELLBUTRIN [Concomitant]
     Indication: DEPRESSION
  4. YASMIN [Suspect]
     Dosage: UNK UNK, QD
     Route: 048
     Dates: start: 20080101, end: 20080301

REACTIONS (2)
  - DEEP VEIN THROMBOSIS [None]
  - PULMONARY EMBOLISM [None]
